FAERS Safety Report 5331712-3 (Version None)
Quarter: 2007Q2

REPORT INFORMATION
  Report Type: 
  Country: None (occurrence: None)
  Receive Date: 20070516
  Receipt Date: 20070511
  Transmission Date: 20071010
  Serious: Yes (Hospitalization)
  Sender: FDA-Public Use
  Company Number: JPI-P-001223

PATIENT
  Age: 36 Year
  Sex: Female

DRUGS (4)
  1. XYREM [Suspect]
     Indication: INSOMNIA
     Dosage: 9 GM (4.5 GM,2 IN 1 D), ORAL
     Route: 048
     Dates: start: 20061101
  2. XANAX [Concomitant]
  3. PERCOCET [Concomitant]
  4. TRYPTOPHAN (TRYPTOPHAN, L-) [Concomitant]

REACTIONS (7)
  - DELIRIUM [None]
  - DELUSION [None]
  - INCOHERENT [None]
  - INSOMNIA [None]
  - MENOPAUSE [None]
  - METRORRHAGIA [None]
  - TOXICOLOGIC TEST ABNORMAL [None]
